FAERS Safety Report 13566268 (Version 3)
Quarter: 2017Q3

REPORT INFORMATION
  Report Type: Spontaneous
  Country: US (occurrence: US)
  Receive Date: 20170521
  Receipt Date: 20170830
  Transmission Date: 20171127
  Serious: Yes (Other)
  Sender: FDA-Public Use
  Company Number: US-CELGENEUS-USA-20170506445

PATIENT
  Sex: Male

DRUGS (1)
  1. POMALYST [Suspect]
     Active Substance: POMALIDOMIDE
     Indication: BENIGN NEOPLASM
     Dosage: 4 MILLIGRAM
     Route: 048
     Dates: start: 20161222

REACTIONS (1)
  - Neutropenia [Recovered/Resolved]
